FAERS Safety Report 18043804 (Version 1)
Quarter: 2020Q3

REPORT INFORMATION
  Report Type: Report from Study
  Country: US (occurrence: US)
  Receive Date: 20200720
  Receipt Date: 20200720
  Transmission Date: 20201103
  Serious: No
  Sender: FDA-Public Use
  Company Number: NVSC2020US197264

PATIENT
  Age: 70 Year
  Sex: Female

DRUGS (1)
  1. ENTRESTO [Suspect]
     Active Substance: SACUBITRIL\VALSARTAN
     Indication: CARDIAC FAILURE CONGESTIVE
     Dosage: 4951 MG, BID
     Route: 048
     Dates: start: 201907

REACTIONS (6)
  - Dyspnoea [Unknown]
  - Visual impairment [Unknown]
  - Nervousness [Unknown]
  - Asthenia [Unknown]
  - Feeling abnormal [Unknown]
  - Visual field defect [Unknown]

NARRATIVE: CASE EVENT DATE: 202006
